FAERS Safety Report 11146216 (Version 1)
Quarter: 2015Q2

REPORT INFORMATION
  Report Type: Spontaneous
  Country: US (occurrence: None)
  Receive Date: 20150527
  Receipt Date: 20150527
  Transmission Date: 20150821
  Serious: Yes (Life-Threatening, Hospitalization, Disabling)
  Sender: FDA-Public Use
  Company Number: None

PATIENT
  Age: 56 Year
  Sex: Male
  Weight: 102.06 kg

DRUGS (1)
  1. XTANDI [Suspect]
     Active Substance: ENZALUTAMIDE
     Indication: PROSTATE CANCER
     Dosage: 4 PILLS ONCE DAILY TAKEN BY MOUTH
     Route: 048

REACTIONS (8)
  - Paraesthesia [None]
  - Musculoskeletal disorder [None]
  - Spinal cord compression [None]
  - Dysuria [None]
  - Functional gastrointestinal disorder [None]
  - Back pain [None]
  - Hypoaesthesia [None]
  - Bladder dysfunction [None]

NARRATIVE: CASE EVENT DATE: 20150520
